FAERS Safety Report 5224078-0 (Version None)
Quarter: 2007Q1

REPORT INFORMATION
  Report Type: 
  Country: None (occurrence: None)
  Receive Date: 20070130
  Receipt Date: 20070118
  Transmission Date: 20070707
  Serious: Yes (Other)
  Sender: FDA-Public Use
  Company Number: PHEH2007US01092

PATIENT
  Sex: Male

DRUGS (2)
  1. GLEEVEC [Suspect]
     Dosage: 400 MG, QD
     Route: 048
  2. PREDNISONE [Concomitant]

REACTIONS (3)
  - LUNG NEOPLASM MALIGNANT [None]
  - MYALGIA [None]
  - NAUSEA [None]
